FAERS Safety Report 19403068 (Version 3)
Quarter: 2021Q3

REPORT INFORMATION
  Report Type: Spontaneous
  Country: US (occurrence: US)
  Receive Date: 20210610
  Receipt Date: 20210727
  Transmission Date: 20211014
  Serious: Yes (Disabling, Other)
  Sender: FDA-Public Use
  Company Number: US-REGENERON PHARMACEUTICALS, INC.-2021-35858

PATIENT

DRUGS (3)
  1. EYLEA [Suspect]
     Active Substance: AFLIBERCEPT
     Dosage: 2 MG, EVERY 5.5 TO 6 WEEKS, LEFT EYE
     Route: 031
     Dates: start: 20210203, end: 20210203
  2. EYLEA [Suspect]
     Active Substance: AFLIBERCEPT
     Dosage: 2 MG, EVERY 5.5 TO 6 WEEKS, LEFT EYE
     Route: 031
     Dates: start: 20210315, end: 20210315
  3. EYLEA [Suspect]
     Active Substance: AFLIBERCEPT
     Indication: NEOVASCULAR AGE-RELATED MACULAR DEGENERATION
     Dosage: 2 MG, EVERY 5.5 TO 6 WEEKS, LEFT EYE
     Route: 031
     Dates: start: 20140710

REACTIONS (3)
  - Blindness transient [Recovered/Resolved]
  - Blindness [Not Recovered/Not Resolved]
  - Endophthalmitis [Recovered/Resolved]

NARRATIVE: CASE EVENT DATE: 20210224
